FAERS Safety Report 4516797-6 (Version None)
Quarter: 2004Q4

REPORT INFORMATION
  Report Type: 
  Country: None (occurrence: None)
  Receive Date: 20041029
  Receipt Date: 20040908
  Transmission Date: 20050328
  Serious: No
  Sender: FDA-Public Use
  Company Number: 2004-120160-NL

PATIENT
  Age: 41 Year
  Sex: Female

DRUGS (18)
  1. NUVARING [Suspect]
     Indication: CONTRACEPTION
     Dosage: DF DAILY VAGINAL
     Route: 067
     Dates: start: 20040301
  2. NUVARING [Suspect]
     Indication: OVARIAN CYST
     Dosage: DF DAILY VAGINAL
     Route: 067
     Dates: start: 20040301
  3. REBIF [Concomitant]
  4. PRILOSEC [Concomitant]
  5. PROVIGIL [Concomitant]
  6. ZOLOFT [Concomitant]
  7. DETROL [Concomitant]
  8. BACLOFEN [Concomitant]
  9. OXYTROL [Concomitant]
  10. ^LOWERTAB^ (=HYDRO-??GENERIC NAME=PAIN MED) [Concomitant]
  11. MONITSTAT [Concomitant]
  12. NAPROXEN [Concomitant]
  13. ALEVE [Concomitant]
  14. IBUPROFEN [Concomitant]
  15. TYLENOL (CAPLET) [Concomitant]
  16. FLAX OIL [Concomitant]
  17. VITAMIN D [Concomitant]
  18. MILK OF MAGNESIA TAB [Concomitant]

REACTIONS (6)
  - DEVICE FAILURE [None]
  - METRORRHAGIA [None]
  - RASH [None]
  - TOOTH INFECTION [None]
  - VAGINAL BURNING SENSATION [None]
  - VAGINAL MYCOSIS [None]
